FAERS Safety Report 14448045 (Version 1)
Quarter: 2018Q1

REPORT INFORMATION
  Report Type: Spontaneous
  Country: FR (occurrence: FR)
  Receive Date: 20180126
  Receipt Date: 20180126
  Transmission Date: 20180509
  Serious: Yes (Death, Life-Threatening)
  Sender: FDA-Public Use
  Company Number: FR-LINDE-FR-LHC-2018015

PATIENT
  Age: 97 Year
  Sex: Male
  Weight: 64 kg

DRUGS (1)
  1. OXYGEN (GENERIC) [Suspect]
     Active Substance: OXYGEN
     Indication: LUNG DISORDER
     Dates: start: 20171226, end: 20171226

REACTIONS (2)
  - Device use error [Unknown]
  - Respiratory distress [Recovered/Resolved]

NARRATIVE: CASE EVENT DATE: 20171226
